FAERS Safety Report 9095327 (Version 1)
Quarter: 2013Q1

REPORT INFORMATION
  Report Type: Spontaneous
  Country: GB (occurrence: None)
  Receive Date: 20130122
  Receipt Date: 20130122
  Transmission Date: 20140127
  Serious: Yes (Other)
  Sender: FDA-Public Use
  Company Number: B0860086A

PATIENT
  Sex: 0

DRUGS (1)
  1. FLUTICASONE PROPIONATE [Suspect]
     Indication: CYSTIC FIBROSIS
     Route: 055

REACTIONS (1)
  - Hypothalamic pituitary adrenal axis suppression [None]
